FAERS Safety Report 17909508 (Version 3)
Quarter: 2020Q4

REPORT INFORMATION
  Report Type: Spontaneous
  Country: ES (occurrence: ES)
  Receive Date: 20200617
  Receipt Date: 20201002
  Transmission Date: 20210113
  Serious: Yes (Death, Hospitalization, Other)
  Sender: FDA-Public Use
  Company Number: ES-ALEXION PHARMACEUTICALS INC.-A202008585

PATIENT
  Age: 17 Year
  Sex: Male
  Weight: 61 kg

DRUGS (3)
  1. SOLIRIS [Suspect]
     Active Substance: ECULIZUMAB
     Indication: THROMBOTIC MICROANGIOPATHY
     Dosage: 900 MG, QW
     Route: 042
     Dates: start: 201510
  2. SOLIRIS [Suspect]
     Active Substance: ECULIZUMAB
     Dosage: UNK
     Route: 065
  3. SOLIRIS [Suspect]
     Active Substance: ECULIZUMAB
     Indication: OFF LABEL USE
     Dosage: 1200 MG, QW
     Route: 042
     Dates: start: 201511

REACTIONS (7)
  - Pneumonia cytomegaloviral [Recovered/Resolved]
  - Pneumonia acinetobacter [Not Recovered/Not Resolved]
  - Cellulitis staphylococcal [Not Recovered/Not Resolved]
  - Thrombotic microangiopathy [Fatal]
  - Immunosuppression [Unknown]
  - Clostridium colitis [Recovered/Resolved]
  - Off label use [Recovered/Resolved]

NARRATIVE: CASE EVENT DATE: 20150318
